FAERS Safety Report 4423167-8 (Version None)
Quarter: 2004Q3

REPORT INFORMATION
  Report Type: 
  Country: None (occurrence: None)
  Receive Date: 20040811
  Receipt Date: 20040802
  Transmission Date: 20050211
  Serious: Yes (Hospitalization)
  Sender: FDA-Public Use
  Company Number: PL-ROCHE-376233

PATIENT
  Age: 31 Year
  Sex: Female

DRUGS (10)
  1. DACLIZUMAB [Suspect]
     Route: 042
     Dates: start: 20040320, end: 20040320
  2. DACLIZUMAB [Suspect]
     Route: 042
  3. MYCOPHENOLATE MOFETIL [Suspect]
     Route: 048
     Dates: start: 20040320
  4. TACROLIMUS [Suspect]
     Route: 048
     Dates: start: 20040320
  5. PREDNISONE [Suspect]
     Route: 048
     Dates: start: 20040320
  6. COTRIMOXAZOL [Concomitant]
     Route: 048
     Dates: start: 20040320
  7. RANITIDINE [Concomitant]
     Route: 048
     Dates: start: 20040320
  8. NYSTATINE [Concomitant]
     Route: 048
     Dates: start: 20040320
  9. METOPROLOL [Concomitant]
     Route: 048
     Dates: start: 20040501
  10. FUROSEMIDE [Concomitant]
     Route: 048
     Dates: start: 20040324

REACTIONS (2)
  - CYTOMEGALOVIRUS INFECTION [None]
  - KIDNEY TRANSPLANT REJECTION [None]
